FAERS Safety Report 7051994-X (Version None)
Quarter: 2010Q4

REPORT INFORMATION
  Report Type: 
  Country: None (occurrence: None)
  Receive Date: 20101019
  Receipt Date: 20101015
  Transmission Date: 20110411
  Serious: Yes (Hospitalization, Disabling)
  Sender: FDA-Public Use
  Company Number: A0887432A

PATIENT
  Age: 59 Year
  Sex: Female

DRUGS (7)
  1. PROMACTA [Suspect]
     Indication: IDIOPATHIC THROMBOCYTOPENIC PURPURA
     Dates: start: 20091101
  2. CORTICOSTEROIDS [Concomitant]
  3. RITUXIMAB [Concomitant]
  4. DANAZOL [Concomitant]
  5. ROMIPLOSTIM [Concomitant]
  6. PREDNISONE [Concomitant]
  7. DEXAMETHASONE [Concomitant]

REACTIONS (1)
  - THROMBOTIC STROKE [None]
